FAERS Safety Report 12362537 (Version 4)
Quarter: 2018Q1

REPORT INFORMATION
  Report Type: Report from Study
  Country: None (occurrence: US)
  Receive Date: 20160512
  Receipt Date: 20180331
  Transmission Date: 20180508
  Serious: Yes (Hospitalization, Other)
  Sender: FDA-Public Use
  Company Number: US-ABBVIE-16K-163-1625516-00

PATIENT
  Sex: Male

DRUGS (4)
  1. HUMIRA [Suspect]
     Active Substance: ADALIMUMAB
     Indication: RHEUMATOID ARTHRITIS
     Route: 058
     Dates: start: 2010
  2. HUMIRA [Suspect]
     Active Substance: ADALIMUMAB
     Route: 058
  3. GABAPENTIN. [Concomitant]
     Active Substance: GABAPENTIN
     Indication: PRODUCT USED FOR UNKNOWN INDICATION
     Dosage: 20-30 MILLIGRAMS EACH DAY
  4. HUMIRA [Suspect]
     Active Substance: ADALIMUMAB
     Route: 058
     Dates: start: 2013, end: 201602

REACTIONS (26)
  - Infection [Unknown]
  - Drug ineffective [Unknown]
  - Wound infection [Not Recovered/Not Resolved]
  - Fall [Unknown]
  - Laceration [Not Recovered/Not Resolved]
  - Cellulitis [Unknown]
  - Pain in extremity [Not Recovered/Not Resolved]
  - Post-traumatic pain [Unknown]
  - Fall [Unknown]
  - Hip arthroplasty [Unknown]
  - Cervical vertebral fracture [Unknown]
  - Rheumatoid arthritis [Unknown]
  - Skin abrasion [Not Recovered/Not Resolved]
  - Osteomyelitis [Unknown]
  - Neuropathy peripheral [Unknown]
  - Fibromyalgia [Unknown]
  - Adverse drug reaction [Unknown]
  - Wound infection [Not Recovered/Not Resolved]
  - Spinal fracture [Unknown]
  - Muscle injury [Not Recovered/Not Resolved]
  - Arthritis infective [Unknown]
  - Arthralgia [Not Recovered/Not Resolved]
  - Tendonitis [Unknown]
  - Peripheral swelling [Not Recovered/Not Resolved]
  - Joint swelling [Not Recovered/Not Resolved]
  - Fall [Unknown]

NARRATIVE: CASE EVENT DATE: 2016
